FAERS Safety Report 21399713 (Version 2)
Quarter: 2022Q4

REPORT INFORMATION
  Report Type: Report from Study
  Country: CA (occurrence: CA)
  Receive Date: 20221001
  Receipt Date: 20221109
  Transmission Date: 20230113
  Serious: Yes (Other)
  Sender: FDA-Public Use
  Company Number: CA-ABBVIE-4135084

PATIENT
  Age: 37 Year
  Sex: Female

DRUGS (1)
  1. SKYRIZI [Suspect]
     Active Substance: RISANKIZUMAB-RZAA
     Indication: Psoriasis
     Route: 058
     Dates: start: 20200331, end: 2022

REACTIONS (9)
  - Upper limb fracture [Unknown]
  - Limb injury [Unknown]
  - Humerus fracture [Unknown]
  - Infection [Unknown]
  - Skin plaque [Unknown]
  - Lip dry [Unknown]
  - Skin exfoliation [Unknown]
  - Dry skin [Unknown]
  - Lip exfoliation [Unknown]

NARRATIVE: CASE EVENT DATE: 20220914
